FAERS Safety Report 6714156-9 (Version None)
Quarter: 2010Q2

REPORT INFORMATION
  Report Type: 
  Country: None (occurrence: None)
  Receive Date: 20100503
  Receipt Date: 20100423
  Transmission Date: 20101027
  Serious: Yes (Hospitalization)
  Sender: FDA-Public Use
  Company Number: 8050560

PATIENT
  Sex: Female

DRUGS (4)
  1. CERTOLIZUMAB PEGOL (CERTOLIZUMAB PEGOL) [Suspect]
     Indication: RHEUMATOID ARTHRITIS
     Dosage: (SUBCUTANEOUS)
     Route: 058
     Dates: start: 20090529, end: 20090807
  2. CERTOLIZUMAB PEGOL (CERTOLIZUMAB PEGOL) [Suspect]
     Indication: RHEUMATOID ARTHRITIS
     Dosage: (SUBCUTANEOUS)
     Route: 058
     Dates: start: 20091110
  3. METHOTREXATE [Concomitant]
  4. FOLIC ACID [Concomitant]

REACTIONS (1)
  - PNEUMONIA [None]
